FAERS Safety Report 6484248-0 (Version None)
Quarter: 2009Q4

REPORT INFORMATION
  Report Type: 
  Country: None (occurrence: None)
  Receive Date: 20091209
  Receipt Date: 20091201
  Transmission Date: 20100525
  Serious: Yes (Hospitalization)
  Sender: FDA-Public Use
  Company Number: B0612285A

PATIENT
  Sex: Female
  Weight: 130 kg

DRUGS (1)
  1. ZANAMIVIR [Suspect]
     Indication: DRUG USE FOR UNKNOWN INDICATION
     Dosage: 1200MG PER DAY
     Route: 065
     Dates: start: 20091117, end: 20091122

REACTIONS (3)
  - OVERDOSE [None]
  - PYREXIA [None]
  - RHABDOMYOLYSIS [None]
